FAERS Safety Report 9988755 (Version 1)
Quarter: 2014Q1

REPORT INFORMATION
  Report Type: Report from Study
  Country: JP (occurrence: JP)
  Receive Date: 20140310
  Receipt Date: 20140310
  Transmission Date: 20141002
  Serious: Yes (Other)
  Sender: FDA-Public Use
  Company Number: JP-ROCHE-1357122

PATIENT
  Sex: 0

DRUGS (3)
  1. BEVACIZUMAB [Suspect]
     Indication: COLORECTAL CANCER METASTATIC
     Dosage: AT A DOSE OF 7.5 MG/KG WAS ADMINISTERED AS A 30- TO 90-MIN INTRAVENOUS INFUSION BEFORE OXALIPLATIN O
     Route: 042
  2. CAPECITABINE [Suspect]
     Indication: COLORECTAL CANCER METASTATIC
     Dosage: FOR 2 WEEKS AND 1 WEEK REST. THE FIRST DOSE OF CAPECITABINE WAS GIVEN IN THE EVENING OF DAY 1 AND TH
     Route: 048
  3. OXALIPLATIN [Suspect]
     Indication: COLORECTAL CANCER METASTATIC
     Dosage: FOR 2 WEEKS AND 1 WEEK REST.
     Route: 042

REACTIONS (16)
  - Proteinuria [Unknown]
  - Platelet count decreased [Unknown]
  - Neuropathy peripheral [Unknown]
  - Blood bilirubin abnormal [Unknown]
  - Stomatitis [Unknown]
  - Amylase abnormal [Unknown]
  - Nausea [Unknown]
  - Vomiting [Unknown]
  - White blood cell disorder [Unknown]
  - Neutrophil count abnormal [Unknown]
  - Haemoglobin abnormal [Unknown]
  - Palmar-plantar erythrodysaesthesia syndrome [Unknown]
  - Transaminases abnormal [Unknown]
  - Diarrhoea [Unknown]
  - Hypertension [Unknown]
  - Haemorrhage [Unknown]
